FAERS Safety Report 4717816-4 (Version None)
Quarter: 2005Q3

REPORT INFORMATION
  Report Type: 
  Country: None (occurrence: None)
  Receive Date: 20050715
  Receipt Date: 20040831
  Transmission Date: 20060218
  Serious: Yes (Other)
  Sender: FDA-Public Use
  Company Number: 2004-00450

PATIENT
  Age: 37 Year
  Sex: Male

DRUGS (3)
  1. INTEGRILIN [Suspect]
     Indication: CORONARY ANGIOPLASTY
  2. HEPARIN [Concomitant]
  3. PLAVIX [Concomitant]

REACTIONS (1)
  - HAEMORRHAGE INTRACRANIAL [None]
